FAERS Safety Report 10855135 (Version 2)
Quarter: 2015Q2

REPORT INFORMATION
  Report Type: Report from Study
  Country: DE (occurrence: DE)
  Receive Date: 20150223
  Receipt Date: 20150417
  Transmission Date: 20150821
  Serious: Yes (Hospitalization)
  Sender: FDA-Public Use
  Company Number: DE-ABBVIE-15K-062-1347124-00

PATIENT
  Age: 62 Year
  Sex: Male
  Weight: 72 kg

DRUGS (8)
  1. HUMIRA [Suspect]
     Active Substance: ADALIMUMAB
     Route: 058
     Dates: start: 20130717, end: 20130717
  2. PANTOPRAZOLE [Concomitant]
     Active Substance: PANTOPRAZOLE SODIUM
     Indication: PRODUCT USED FOR UNKNOWN INDICATION
  3. HUMIRA [Suspect]
     Active Substance: ADALIMUMAB
     Indication: CROHN^S DISEASE
     Route: 058
     Dates: start: 20130703, end: 20130703
  4. RAMILICH [Concomitant]
     Active Substance: RAMIPRIL
     Indication: PRODUCT USED FOR UNKNOWN INDICATION
     Dosage: 25/5, 1-0-0
  5. CEFUROXIME. [Concomitant]
     Active Substance: CEFUROXIME
     Indication: PRODUCT USED FOR UNKNOWN INDICATION
     Dates: start: 201501
  6. HUMIRA [Suspect]
     Active Substance: ADALIMUMAB
     Route: 058
     Dates: start: 20130731
  7. METHOTREXATE [Concomitant]
     Active Substance: METHOTREXATE
     Indication: PRODUCT USED FOR UNKNOWN INDICATION
  8. PREDNISOLONE. [Concomitant]
     Active Substance: PREDNISOLONE
     Indication: PRODUCT USED FOR UNKNOWN INDICATION

REACTIONS (26)
  - Joint swelling [Recovering/Resolving]
  - Pericarditis [Recovering/Resolving]
  - Arthralgia [Recovering/Resolving]
  - Gamma-glutamyltransferase increased [Unknown]
  - Platelet count increased [Unknown]
  - Infection [Recovered/Resolved]
  - Back pain [Unknown]
  - Activated partial thromboplastin time prolonged [Unknown]
  - Lung disorder [Unknown]
  - Bursitis [Unknown]
  - Fatigue [Unknown]
  - Pyrexia [Unknown]
  - Haematocrit decreased [Unknown]
  - Renal pain [Unknown]
  - General physical health deterioration [Recovered/Resolved]
  - Blood glucose increased [Unknown]
  - Inflammatory marker increased [Recovering/Resolving]
  - Night sweats [Unknown]
  - Varicose vein [Unknown]
  - C-reactive protein increased [Unknown]
  - Fibrin D dimer increased [Unknown]
  - Pain [Unknown]
  - Myalgia [Recovering/Resolving]
  - Haemoglobin decreased [Unknown]
  - International normalised ratio increased [Unknown]
  - Drug effect decreased [Unknown]

NARRATIVE: CASE EVENT DATE: 2014
